FAERS Safety Report 5743841-0 (Version None)
Quarter: 2008Q2

REPORT INFORMATION
  Report Type: 
  Country: None (occurrence: None)
  Receive Date: 20080516
  Receipt Date: 20080506
  Transmission Date: 20081010
  Serious: Yes (Life-Threatening, Hospitalization)
  Sender: FDA-Public Use
  Company Number: ADE2008-0178

PATIENT
  Age: 81 Year
  Sex: Female

DRUGS (6)
  1. METFORMIN HCL [Suspect]
     Indication: DIABETES MELLITUS INADEQUATE CONTROL
     Dosage: 500MG 1TAB BID-PO
     Route: 048
     Dates: start: 20060516, end: 20060605
  2. GLICLAZIDE [Suspect]
     Indication: DIABETES MELLITUS
     Dosage: 160MG 1TAB BID-PO
     Route: 048
  3. AMITRIPTYLINE HCL [Concomitant]
  4. PERINDOPRIL [Concomitant]
  5. SIMVASTATIN [Concomitant]
  6. SYMBICORT [Concomitant]

REACTIONS (2)
  - CIRCULATORY COLLAPSE [None]
  - HYPOGLYCAEMIA [None]
